FAERS Safety Report 12778617 (Version 12)
Quarter: 2018Q1

REPORT INFORMATION
  Report Type: Report from Study
  Country: US (occurrence: US)
  Receive Date: 20160926
  Receipt Date: 20180320
  Transmission Date: 20180508
  Serious: Yes (Other)
  Sender: FDA-Public Use
  Company Number: US-UCBSA-2016017588

PATIENT
  Age: 53 Year
  Sex: Female

DRUGS (8)
  1. LEVETIRACETAM. [Suspect]
     Active Substance: LEVETIRACETAM
     Indication: SEIZURE
     Dosage: UNK
  2. DILANTIN [Concomitant]
     Active Substance: PHENYTOIN
     Indication: SEIZURE
  3. TEGRETOL [Concomitant]
     Active Substance: CARBAMAZEPINE
     Indication: PRODUCT USED FOR UNKNOWN INDICATION
  4. VIMPAT [Suspect]
     Active Substance: LACOSAMIDE
     Indication: SEIZURE
     Dosage: 400 MG, A DAY
  5. VIMPAT [Suspect]
     Active Substance: LACOSAMIDE
     Dosage: 300 MG, A DAY
  6. PHENOBARBITAL. [Concomitant]
     Active Substance: PHENOBARBITAL
     Indication: SEIZURE
  7. DEPAKENE [Suspect]
     Active Substance: VALPROIC ACID
     Indication: PRODUCT USED FOR UNKNOWN INDICATION
     Dosage: UNK
  8. FOLIC ACID. [Concomitant]
     Active Substance: FOLIC ACID
     Indication: PRODUCT USED FOR UNKNOWN INDICATION

REACTIONS (15)
  - Decreased appetite [Unknown]
  - Brain operation [Unknown]
  - Anger [Recovering/Resolving]
  - Somnolence [Unknown]
  - Cardiac disorder [Unknown]
  - Myoclonic epilepsy [Unknown]
  - Weight decreased [Unknown]
  - Seizure [Not Recovered/Not Resolved]
  - Multiple-drug resistance [Unknown]
  - Insomnia [Recovering/Resolving]
  - Back pain [Recovering/Resolving]
  - Depression [Unknown]
  - Heart rate increased [Unknown]
  - Dizziness [Unknown]
  - Aggression [Unknown]
